FAERS Safety Report 15351666 (Version 1)
Quarter: 2018Q3

REPORT INFORMATION
  Report Type: Spontaneous
  Country: US (occurrence: US)
  Receive Date: 20180829
  Receipt Date: 20180829
  Transmission Date: 20181010
  Serious: Yes (Life-Threatening, Hospitalization)
  Sender: FDA-Public Use
  Company Number: None

PATIENT
  Age: 65 Year
  Sex: Female
  Weight: 120.6 kg

DRUGS (18)
  1. MAG OXIDE [Concomitant]
     Active Substance: MAGNESIUM OXIDE
  2. PREDNISONE. [Concomitant]
     Active Substance: PREDNISONE
  3. AMBIEN [Concomitant]
     Active Substance: ZOLPIDEM TARTRATE
  4. ENBREL [Concomitant]
     Active Substance: ETANERCEPT
  5. TRIAMTERENE/HCTZ TABS 75MG/50MG; GENERIC FOR: MAXZIDE TABS; [Suspect]
     Active Substance: HYDROCHLOROTHIAZIDE\TRIAMTERENE
     Indication: HYPERTENSION
     Dosage: ?          QUANTITY:1 TABLET(S);?
     Route: 048
     Dates: start: 20180510, end: 20180812
  6. ATIVAN [Concomitant]
     Active Substance: LORAZEPAM
  7. MULTI?VITAMIN [Concomitant]
     Active Substance: .ALPHA.-TOCOPHEROL ACETATE, DL-\ASCORBIC ACID\CYANOCOBALAMIN\FLUORIDE ION\FOLIC ACID\NIACIN\PYRIDOXINE\RIBOFLAVIN\THIAMINE\VITAMIN A\VITAMIN D
  8. PROBIOTIC [Concomitant]
     Active Substance: PROBIOTICS NOS
  9. HYDROCODONE [Concomitant]
     Active Substance: HYDROCODONE
  10. PROZAC [Concomitant]
     Active Substance: FLUOXETINE HYDROCHLORIDE
  11. GLUCOSAMINE + CHONDROITIN [Concomitant]
  12. LISINOPRIL. [Concomitant]
     Active Substance: LISINOPRIL
  13. LEVOTHYROXINE. [Concomitant]
     Active Substance: LEVOTHYROXINE
  14. PRAMIPEXOLE. [Concomitant]
     Active Substance: PRAMIPEXOLE
  15. NEURONTIN [Concomitant]
     Active Substance: GABAPENTIN
  16. OMEGA 3 [Concomitant]
     Active Substance: OMEGA-3 FATTY ACIDS
  17. CURCUMIN [Concomitant]
     Active Substance: CURCUMIN
  18. VITAMIN B12 [Concomitant]
     Active Substance: CYANOCOBALAMIN

REACTIONS (3)
  - Nausea [None]
  - Asthenia [None]
  - Blood sodium decreased [None]

NARRATIVE: CASE EVENT DATE: 20180812
